FAERS Safety Report 25772817 (Version 2)
Quarter: 2025Q3

REPORT INFORMATION
  Report Type: Report from Study
  Country: HK (occurrence: HK)
  Receive Date: 20250908
  Receipt Date: 20250918
  Transmission Date: 20251020
  Serious: Yes (Death)
  Sender: TEVA
  Company Number: HK-TEVA-VS-3369036

PATIENT

DRUGS (3)
  1. PANTOPRAZOLE [Interacting]
     Active Substance: PANTOPRAZOLE
     Indication: Product used for unknown indication
     Route: 065
  2. ITRACONAZOLE [Interacting]
     Active Substance: ITRACONAZOLE
     Indication: Antifungal prophylaxis
     Route: 048
  3. APREPITANT [Interacting]
     Active Substance: APREPITANT
     Indication: Product used for unknown indication
     Route: 065

REACTIONS (2)
  - Treatment failure [Fatal]
  - Drug interaction [Fatal]
